FAERS Safety Report 10019676 (Version 1)
Quarter: 2014Q1

REPORT INFORMATION
  Report Type: Report from Study
  Country: US (occurrence: US)
  Receive Date: 20140318
  Receipt Date: 20140318
  Transmission Date: 20141002
  Serious: Yes (Other)
  Sender: FDA-Public Use
  Company Number: US-ABBVIE-14P-163-1213444-00

PATIENT
  Age: 43 Year
  Sex: Female

DRUGS (10)
  1. HUMIRA [Suspect]
     Indication: CROHN^S DISEASE
     Dates: start: 20131209, end: 20140303
  2. BOTOX [Suspect]
     Indication: MIGRAINE
  3. SYNTHROID [Concomitant]
     Indication: THYROID HORMONE REPLACEMENT THERAPY
  4. TRAZODONE [Concomitant]
     Indication: INSOMNIA
     Dosage: AT BEDTIME
  5. POTASSIUM CITRATE [Concomitant]
     Indication: SINGLE FUNCTIONAL KIDNEY
  6. TOPAMAX [Concomitant]
     Indication: MIGRAINE
  7. FLINSTONES MULTI-VITAMIN [Concomitant]
     Indication: PRODUCT USED FOR UNKNOWN INDICATION
     Dosage: DAILY
  8. FISH OIL [Concomitant]
     Indication: PRODUCT USED FOR UNKNOWN INDICATION
  9. EXTRA VITAMIN D [Concomitant]
     Indication: PRODUCT USED FOR UNKNOWN INDICATION
     Dosage: WEEKLY
  10. VITAMIN C [Concomitant]
     Indication: PRODUCT USED FOR UNKNOWN INDICATION
     Dosage: WEEKLY

REACTIONS (4)
  - Procedural complication [Not Recovered/Not Resolved]
  - Vaginal operation [Not Recovered/Not Resolved]
  - Vision blurred [Unknown]
  - Visual acuity reduced [Unknown]
